FAERS Safety Report 5575321-X (Version None)
Quarter: 2007Q4

REPORT INFORMATION
  Report Type: 
  Country: None (occurrence: None)
  Receive Date: 20071227
  Receipt Date: 20071218
  Transmission Date: 20080405
  Serious: Yes (Other)
  Sender: FDA-Public Use
  Company Number: FR-PFIZER INC-2007107372

PATIENT
  Age: 41 Year
  Sex: Male

DRUGS (1)
  1. TAHOR [Suspect]
     Dates: start: 19970101, end: 20070101

REACTIONS (5)
  - MUSCLE MASS [None]
  - MYALGIA [None]
  - MYOSITIS [None]
  - TENDON DISORDER [None]
  - WEIGHT INCREASED [None]
